FAERS Safety Report 4461690-0 (Version None)
Quarter: 2004Q3

REPORT INFORMATION
  Report Type: 
  Country: None (occurrence: None)
  Receive Date: 20040929
  Receipt Date: 20040922
  Transmission Date: 20050211
  Serious: Yes (Hospitalization)
  Sender: FDA-Public Use
  Company Number: 200413561FR

PATIENT
  Age: 65 Year
  Sex: Male

DRUGS (7)
  1. LOVENOX [Suspect]
     Route: 058
  2. XANAX [Suspect]
     Route: 048
  3. CETORNAN [Suspect]
     Route: 048
  4. DEROXAT [Suspect]
     Route: 048
  5. SOPHIDONE LP [Suspect]
     Route: 048
  6. MIXTARD HUMAN 70/30 [Suspect]
     Route: 058
  7. NAVELBINE [Concomitant]
     Indication: LUNG NEOPLASM MALIGNANT

REACTIONS (6)
  - CONFUSIONAL STATE [None]
  - DEHYDRATION [None]
  - DISORIENTATION [None]
  - GENERAL PHYSICAL HEALTH DETERIORATION [None]
  - RENAL FAILURE ACUTE [None]
  - VOMITING [None]
